FAERS Safety Report 7967935-4 (Version None)
Quarter: 2011Q4

REPORT INFORMATION
  Report Type: 
  Country: None (occurrence: None)
  Receive Date: 20111207
  Receipt Date: 20111124
  Transmission Date: 20120403
  Serious: Yes (Hospitalization)
  Sender: FDA-Public Use
  Company Number: TCI2011A05283

PATIENT
  Age: 89 Year
  Sex: Female

DRUGS (5)
  1. PREDNISOLONE [Concomitant]
  2. MAGNESIUM OXIDE [Concomitant]
  3. ACTOS [Suspect]
     Indication: TYPE 2 DIABETES MELLITUS
     Dosage: 15 MG (15 MG,1 IN 1 D) PER ORAL
     Route: 048
     Dates: start: 20110708
  4. GLIMEPIRIDE OD (GLIMEPIRIDE) [Concomitant]
  5. SENNOSIDE (SENNOSIDE A+B CALCIUM) [Concomitant]

REACTIONS (3)
  - PNEUMONIA [None]
  - BRONCHITIS [None]
  - CARDIAC FAILURE [None]
